FAERS Safety Report 17061482 (Version 5)
Quarter: 2020Q4

REPORT INFORMATION
  Report Type: Spontaneous
  Country: US (occurrence: US)
  Receive Date: 20191121
  Receipt Date: 20201016
  Transmission Date: 20210113
  Serious: Yes (Death)
  Sender: FDA-Public Use
  Company Number: US-PFIZER INC-2019501801

PATIENT
  Age: 85 Year
  Sex: Female
  Weight: 38.56 kg

DRUGS (2)
  1. NORPACE [Suspect]
     Active Substance: DISOPYRAMIDE PHOSPHATE
     Indication: HEART RATE
     Dosage: UNK
  2. NORPACE [Suspect]
     Active Substance: DISOPYRAMIDE PHOSPHATE
     Dosage: 150 MG, 4X/DAY
     Route: 048

REACTIONS (2)
  - Lung neoplasm malignant [Fatal]
  - Hypoacusis [Unknown]

NARRATIVE: CASE EVENT DATE: 20200928
